FAERS Safety Report 7167590-X (Version None)
Quarter: 2010Q4

REPORT INFORMATION
  Report Type: 
  Country: None (occurrence: None)
  Receive Date: 20101216
  Receipt Date: 20100420
  Transmission Date: 20110411
  Serious: No
  Sender: FDA-Public Use
  Company Number: A0855866A

PATIENT
  Age: 56 Year
  Sex: Male

DRUGS (1)
  1. NICOTINE POLACRILEX [Suspect]
     Dates: start: 20100214

REACTIONS (3)
  - DYSPEPSIA [None]
  - NAUSEA [None]
  - NICOTINE DEPENDENCE [None]
